FAERS Safety Report 5620105-7 (Version None)
Quarter: 2008Q1

REPORT INFORMATION
  Report Type: 
  Country: None (occurrence: None)
  Receive Date: 20080208
  Receipt Date: 20080125
  Transmission Date: 20080703
  Serious: Yes (Death)
  Sender: FDA-Public Use
  Company Number: DE-ROCHE-540801

PATIENT
  Age: 43 Year
  Sex: Female
  Weight: 82 kg

DRUGS (4)
  1. CAPECITABINE [Suspect]
     Indication: PANCREATIC CARCINOMA
     Dosage: DOSE REPORTED AS 500 MG AND FREQUENCY REPORTED AS 4 - 0 - 2 PO DAILY.
     Route: 048
     Dates: start: 20071205, end: 20080110
  2. ERLOTINIB [Suspect]
     Indication: PANCREATIC CARCINOMA
     Route: 048
     Dates: start: 20071205, end: 20080110
  3. CLEXANE [Suspect]
     Indication: THROMBOSIS PROPHYLAXIS
     Route: 065
     Dates: start: 20071213, end: 20080112
  4. VOLTAREN [Concomitant]
     Dates: start: 20071227

REACTIONS (2)
  - ANAEMIA [None]
  - INTRA-ABDOMINAL HAEMORRHAGE [None]
